FAERS Safety Report 23266089 (Version 1)
Quarter: 2023Q4

REPORT INFORMATION
  Report Type: Spontaneous
  Country: CH (occurrence: CH)
  Receive Date: 20231206
  Receipt Date: 20231206
  Transmission Date: 20240110
  Serious: Yes (Hospitalization)
  Sender: FDA-Public Use
  Company Number: CH-IDORSIA-007320-2023-CH

PATIENT
  Age: 52 Year
  Sex: Male

DRUGS (1)
  1. QUVIVIQ [Suspect]
     Active Substance: DARIDOREXANT
     Indication: Insomnia
     Dosage: 25 MG, QD
     Route: 065
     Dates: start: 20231129

REACTIONS (4)
  - Fall [Unknown]
  - Drug ineffective [Unknown]
  - Muscular weakness [Recovering/Resolving]
  - Emotional distress [Recovering/Resolving]

NARRATIVE: CASE EVENT DATE: 20231129
